FAERS Safety Report 5562958-7 (Version None)
Quarter: 2007Q4

REPORT INFORMATION
  Report Type: 
  Country: None (occurrence: None)
  Receive Date: 20071217
  Receipt Date: 20071205
  Transmission Date: 20080405
  Serious: Yes (Death)
  Sender: FDA-Public Use
  Company Number: US-ROCHE-535418

PATIENT
  Age: 66 Year
  Sex: Male

DRUGS (2)
  1. CELLCEPT [Suspect]
     Indication: MYASTHENIA GRAVIS
     Route: 048
     Dates: start: 20071001, end: 20071130
  2. UNSPECIFIED MEDICATIONS [Concomitant]

REACTIONS (1)
  - SUDDEN DEATH [None]
